FAERS Safety Report 20335234 (Version 2)
Quarter: 2022Q1

REPORT INFORMATION
  Report Type: Report from Study
  Country: US (occurrence: US)
  Receive Date: 20220114
  Receipt Date: 20220210
  Transmission Date: 20220423
  Serious: Yes (Other)
  Sender: FDA-Public Use
  Company Number: US-CHILTERN-QED-2021-000072

PATIENT
  Age: 46 Year
  Sex: Female
  Weight: 51.5 kg

DRUGS (2)
  1. INFIGRATINIB [Suspect]
     Active Substance: INFIGRATINIB
     Indication: Cholangiocarcinoma
     Dosage: 75 MILLIGRAM, QD
     Route: 048
     Dates: start: 20191008, end: 20201005
  2. INFIGRATINIB [Suspect]
     Active Substance: INFIGRATINIB
     Indication: Breast cancer

REACTIONS (1)
  - Cataract [Not Recovered/Not Resolved]

NARRATIVE: CASE EVENT DATE: 20201104
